FAERS Safety Report 4435953-9 (Version None)
Quarter: 2004Q3

REPORT INFORMATION
  Report Type: 
  Country: None (occurrence: None)
  Receive Date: 20040726
  Receipt Date: 20040319
  Transmission Date: 20050211
  Serious: No
  Sender: FDA-Public Use
  Company Number: USA040360540

PATIENT
  Age: 76 Year
  Sex: Female
  Weight: 56 kg

DRUGS (5)
  1. FORTEO [Suspect]
     Indication: BONE DENSITOMETRY
     Dosage: 20 UG/1 DAY
     Dates: start: 20040220, end: 20040308
  2. FORTEO [Suspect]
     Indication: SPINAL X-RAY
     Dosage: 20 UG/1 DAY
     Dates: start: 20040220, end: 20040308
  3. LISINOPRIL [Concomitant]
  4. CHOLESTEROL [Concomitant]
  5. LOVASTATIN [Concomitant]

REACTIONS (4)
  - CHILLS [None]
  - DIZZINESS [None]
  - PAIN [None]
  - PYREXIA [None]
